FAERS Safety Report 6333403-9 (Version None)
Quarter: 2009Q3

REPORT INFORMATION
  Report Type: 
  Country: None (occurrence: None)
  Receive Date: 20090828
  Receipt Date: 20090821
  Transmission Date: 20100115
  Serious: Yes (Death, Other)
  Sender: FDA-Public Use
  Company Number: US-AMGEN-US361329

PATIENT
  Sex: Male

DRUGS (2)
  1. NPLATE [Suspect]
     Indication: IDIOPATHIC THROMBOCYTOPENIC PURPURA
     Route: 065
     Dates: start: 20090212, end: 20090226
  2. CORTICOSTEROIDS [Concomitant]
     Route: 065
     Dates: start: 20090121

REACTIONS (2)
  - CEREBRAL HAEMORRHAGE [None]
  - DRUG INEFFECTIVE [None]
